FAERS Safety Report 18025106 (Version 3)
Quarter: 2022Q3

REPORT INFORMATION
  Report Type: Spontaneous
  Country: US (occurrence: US)
  Receive Date: 20200715
  Receipt Date: 20220701
  Transmission Date: 20221027
  Serious: No
  Sender: FDA-Public Use
  Company Number: US-PFIZER INC-2020270920

PATIENT
  Age: 68 Year
  Sex: Female

DRUGS (1)
  1. EUCRISA [Suspect]
     Active Substance: CRISABOROLE
     Indication: Eczema
     Dosage: PUT A LITTLE ON WHEN NEEDED

REACTIONS (3)
  - Illness [Unknown]
  - Drug ineffective [Unknown]
  - Off label use [Unknown]
